FAERS Safety Report 24728413 (Version 1)
Quarter: 2024Q4

REPORT INFORMATION
  Report Type: Report from Study
  Country: ES (occurrence: ES)
  Receive Date: 20241212
  Receipt Date: 20241212
  Transmission Date: 20250115
  Serious: Yes (Death, Life-Threatening)
  Sender: ABBVIE
  Company Number: ES-ABBVIE-6041358

PATIENT
  Age: 82 Year
  Sex: Male
  Weight: 82 kg

DRUGS (3)
  1. HUMIRA [Suspect]
     Active Substance: ADALIMUMAB
     Indication: Colitis ulcerative
     Route: 058
     Dates: start: 20150319, end: 20160515
  2. SALOFALK [Concomitant]
     Indication: Colitis ulcerative
     Dosage: DAILY
     Route: 048
     Dates: start: 20120702
  3. SALOFALK [Concomitant]
     Indication: Colitis ulcerative
     Dosage: DAILY
     Route: 054
     Dates: start: 20140929

REACTIONS (2)
  - Cardio-respiratory arrest [Fatal]
  - Respiratory tract infection [Recovered/Resolved]

NARRATIVE: CASE EVENT DATE: 20241117
